FAERS Safety Report 8351529-5 (Version None)
Quarter: 2012Q2

REPORT INFORMATION
  Report Type: 
  Country: None (occurrence: None)
  Receive Date: 20120511
  Receipt Date: 20120508
  Transmission Date: 20120825
  Serious: Yes (Hospitalization)
  Sender: FDA-Public Use
  Company Number: GB-AMGEN-GBRSP2012029041

PATIENT
  Sex: Female

DRUGS (1)
  1. NPLATE [Suspect]
     Indication: PLATELET COUNT DECREASED
     Dosage: UNK

REACTIONS (2)
  - HAEMORRHAGE [None]
  - PLATELET COUNT DECREASED [None]
